FAERS Safety Report 25750841 (Version 1)
Quarter: 2025Q3

REPORT INFORMATION
  Report Type: Spontaneous
  Country: EU (occurrence: EU)
  Receive Date: 20250902
  Receipt Date: 20250902
  Transmission Date: 20251021
  Serious: Yes (Other)
  Sender: MYLAN
  Company Number: EU-DialogSolutions-SAAVPROD-PI809485-C4

PATIENT
  Sex: Female

DRUGS (52)
  1. CIMETIDINE [Suspect]
     Active Substance: CIMETIDINE
     Indication: Product used for unknown indication
     Route: 065
  2. CIMETIDINE [Suspect]
     Active Substance: CIMETIDINE
  3. CIMETIDINE [Suspect]
     Active Substance: CIMETIDINE
  4. CIMETIDINE [Suspect]
     Active Substance: CIMETIDINE
     Route: 065
  5. CIMETIDINE [Suspect]
     Active Substance: CIMETIDINE
     Route: 065
  6. CIMETIDINE [Suspect]
     Active Substance: CIMETIDINE
  7. CIMETIDINE [Suspect]
     Active Substance: CIMETIDINE
  8. CIMETIDINE [Suspect]
     Active Substance: CIMETIDINE
     Route: 065
  9. CIMETIDINE [Suspect]
     Active Substance: CIMETIDINE
  10. CIMETIDINE [Suspect]
     Active Substance: CIMETIDINE
  11. CIMETIDINE [Suspect]
     Active Substance: CIMETIDINE
     Route: 065
  12. CIMETIDINE [Suspect]
     Active Substance: CIMETIDINE
     Route: 065
  13. CIMETIDINE [Suspect]
     Active Substance: CIMETIDINE
  14. CIMETIDINE [Suspect]
     Active Substance: CIMETIDINE
  15. CIMETIDINE [Suspect]
     Active Substance: CIMETIDINE
     Route: 065
  16. CIMETIDINE [Suspect]
     Active Substance: CIMETIDINE
     Route: 065
  17. ENOXAPARIN [Suspect]
     Active Substance: ENOXAPARIN
     Indication: Product used for unknown indication
  18. ENOXAPARIN [Suspect]
     Active Substance: ENOXAPARIN
  19. ENOXAPARIN [Suspect]
     Active Substance: ENOXAPARIN
     Route: 065
  20. ENOXAPARIN [Suspect]
     Active Substance: ENOXAPARIN
     Route: 065
  21. ENOXAPARIN [Suspect]
     Active Substance: ENOXAPARIN
  22. ENOXAPARIN [Suspect]
     Active Substance: ENOXAPARIN
  23. ENOXAPARIN [Suspect]
     Active Substance: ENOXAPARIN
     Route: 065
  24. ENOXAPARIN [Suspect]
     Active Substance: ENOXAPARIN
     Route: 065
  25. ENOXAPARIN [Suspect]
     Active Substance: ENOXAPARIN
  26. ENOXAPARIN [Suspect]
     Active Substance: ENOXAPARIN
     Route: 065
  27. ENOXAPARIN [Suspect]
     Active Substance: ENOXAPARIN
  28. ENOXAPARIN [Suspect]
     Active Substance: ENOXAPARIN
     Route: 065
  29. ACETAZOLAMIDE [Suspect]
     Active Substance: ACETAZOLAMIDE
     Indication: Product used for unknown indication
     Route: 065
  30. ACETAZOLAMIDE [Suspect]
     Active Substance: ACETAZOLAMIDE
  31. ACETAZOLAMIDE [Suspect]
     Active Substance: ACETAZOLAMIDE
  32. ACETAZOLAMIDE [Suspect]
     Active Substance: ACETAZOLAMIDE
     Route: 065
  33. ACETAZOLAMIDE [Suspect]
     Active Substance: ACETAZOLAMIDE
     Route: 065
  34. ACETAZOLAMIDE [Suspect]
     Active Substance: ACETAZOLAMIDE
  35. ACETAZOLAMIDE [Suspect]
     Active Substance: ACETAZOLAMIDE
  36. ACETAZOLAMIDE [Suspect]
     Active Substance: ACETAZOLAMIDE
     Route: 065
  37. ACETAZOLAMIDE [Suspect]
     Active Substance: ACETAZOLAMIDE
  38. ACETAZOLAMIDE [Suspect]
     Active Substance: ACETAZOLAMIDE
  39. ACETAZOLAMIDE [Suspect]
     Active Substance: ACETAZOLAMIDE
     Route: 065
  40. ACETAZOLAMIDE [Suspect]
     Active Substance: ACETAZOLAMIDE
     Route: 065
  41. ACETAZOLAMIDE [Suspect]
     Active Substance: ACETAZOLAMIDE
  42. ACETAZOLAMIDE [Suspect]
     Active Substance: ACETAZOLAMIDE
  43. ACETAZOLAMIDE [Suspect]
     Active Substance: ACETAZOLAMIDE
     Route: 065
  44. ACETAZOLAMIDE [Suspect]
     Active Substance: ACETAZOLAMIDE
     Route: 065
  45. RACECADOTRIL [Suspect]
     Active Substance: RACECADOTRIL
     Indication: Product used for unknown indication
  46. RACECADOTRIL [Suspect]
     Active Substance: RACECADOTRIL
  47. RACECADOTRIL [Suspect]
     Active Substance: RACECADOTRIL
     Route: 065
  48. RACECADOTRIL [Suspect]
     Active Substance: RACECADOTRIL
     Route: 065
  49. RACECADOTRIL [Suspect]
     Active Substance: RACECADOTRIL
  50. RACECADOTRIL [Suspect]
     Active Substance: RACECADOTRIL
  51. RACECADOTRIL [Suspect]
     Active Substance: RACECADOTRIL
     Route: 065
  52. RACECADOTRIL [Suspect]
     Active Substance: RACECADOTRIL
     Route: 065

REACTIONS (2)
  - Drug reaction with eosinophilia and systemic symptoms [Unknown]
  - Rash maculo-papular [Unknown]
